FAERS Safety Report 24887621 (Version 1)
Quarter: 2025Q1

REPORT INFORMATION
  Report Type: Spontaneous
  Country: US (occurrence: US)
  Receive Date: 20250127
  Receipt Date: 20250127
  Transmission Date: 20250409
  Serious: No
  Sender: SANOFI AVENTIS
  Company Number: US-SANOFI-02378178

PATIENT
  Sex: Male

DRUGS (2)
  1. MULTAQ [Interacting]
     Active Substance: DRONEDARONE
     Route: 048
  2. LEXAPRO [Interacting]
     Active Substance: ESCITALOPRAM OXALATE

REACTIONS (2)
  - Drug interaction [Unknown]
  - Contraindicated product prescribed [Unknown]
